FAERS Safety Report 17140663 (Version 2)
Quarter: 2019Q4

REPORT INFORMATION
  Report Type: Report from Study
  Country: GB (occurrence: GB)
  Receive Date: 20191211
  Receipt Date: 20191213
  Transmission Date: 20200122
  Serious: Yes (Other)
  Sender: FDA-Public Use
  Company Number: NVSC2019GB054864

PATIENT
  Sex: Female

DRUGS (3)
  1. FLU VACCINE VII [Suspect]
     Active Substance: INFLUENZA VIRUS VACCINE
     Indication: PRODUCT USED FOR UNKNOWN INDICATION
     Route: 065
  2. PARACETAMOL [Concomitant]
     Active Substance: ACETAMINOPHEN
     Indication: PRODUCT USED FOR UNKNOWN INDICATION
     Dosage: 1000 MG (500 MGX 2)
     Route: 065
  3. COSENTYX [Suspect]
     Active Substance: SECUKINUMAB
     Indication: PSORIATIC ARTHROPATHY
     Dosage: 150 MG, QW (WEEK 0, 1, 2, 3, 4 - 150MG AND AFTER ITS MONTHLY)
     Route: 058
     Dates: start: 20191119

REACTIONS (15)
  - Cough [Not Recovered/Not Resolved]
  - Hot flush [Unknown]
  - Feeling abnormal [Unknown]
  - Pain of skin [Recovering/Resolving]
  - Dizziness [Not Recovered/Not Resolved]
  - Skin hypertrophy [Recovering/Resolving]
  - Malaise [Recovered/Resolved]
  - Erythema [Recovering/Resolving]
  - Asthma [Unknown]
  - Pneumonia [Unknown]
  - Fatigue [Unknown]
  - Skin mass [Recovering/Resolving]
  - Peripheral swelling [Recovering/Resolving]
  - Oropharyngeal pain [Unknown]
  - Feeling hot [Recovering/Resolving]
